FAERS Safety Report 15201840 (Version 1)
Quarter: 2018Q3

REPORT INFORMATION
  Report Type: Spontaneous
  Country: US (occurrence: US)
  Receive Date: 20180726
  Receipt Date: 20180726
  Transmission Date: 20181010
  Serious: No
  Sender: FDA-Public Use
  Company Number: US-MYLANLABS-2018M1049414

PATIENT
  Sex: Female
  Weight: 48 kg

DRUGS (4)
  1. FENTANYL TRANSDERMAL SYSTEM [Suspect]
     Active Substance: FENTANYL
     Indication: OSTEOPOROSIS
  2. FENTANYL TRANSDERMAL SYSTEM [Suspect]
     Active Substance: FENTANYL
     Indication: ARTHRALGIA
     Dosage: 25 ?G, Q3D
     Route: 062
  3. EXTRA STRENGTH TYLENOL BACK PAIN [Concomitant]
     Active Substance: ACETAMINOPHEN\METHOCARBAMOL
     Indication: ARTHRALGIA
     Dosage: UNK
  4. EXTRA STRENGTH TYLENOL BACK PAIN [Concomitant]
     Active Substance: ACETAMINOPHEN\METHOCARBAMOL
     Indication: OSTEOPOROSIS

REACTIONS (3)
  - Product adhesion issue [Unknown]
  - Drug effect variable [Not Recovered/Not Resolved]
  - Wrong technique in product usage process [Not Recovered/Not Resolved]

NARRATIVE: CASE EVENT DATE: 2018
